FAERS Safety Report 10959896 (Version 2)
Quarter: 2015Q2

REPORT INFORMATION
  Report Type: Spontaneous
  Country: US (occurrence: None)
  Receive Date: 20150325
  Receipt Date: 20150408
  Transmission Date: 20150821
  Serious: Yes (Other)
  Sender: FDA-Public Use
  Company Number: CIO14055958

PATIENT
  Age: 53 Year
  Sex: Female
  Weight: 90.5 kg

DRUGS (3)
  1. CREST PRO-HEALTH SENSITIVE SHIELD SMOOTH MINT [Suspect]
     Active Substance: STANNOUS FLUORIDE
     Dosage: HALF OF BRUSH HEAD THREE TIMES A DAY FOR APPROXIMATELY THREE WEEKS, INTRAORAL
     Dates: start: 201407, end: 201408
  2. UNSPECIFIED MEDICATIONS [Concomitant]
     Active Substance: UNSPECIFIED INGREDIENT
  3. LISTERINE ORIGINAL [Concomitant]
     Active Substance: EUCALYPTOL\MENTHOL\METHYL SALICYLATE\THYMOL

REACTIONS (28)
  - Burning sensation [None]
  - Cellulitis [None]
  - Weight decreased [None]
  - Oral mucosal exfoliation [None]
  - Endometrial hyperplasia [None]
  - Cervicitis [None]
  - Wound drainage [None]
  - Wound infection [None]
  - Stomatitis [None]
  - Incision site erythema [None]
  - Purulent discharge [None]
  - Cell death [None]
  - Uterine cancer [None]
  - Loose tooth [None]
  - Uterine leiomyoma [None]
  - Wound complication [None]
  - Blood pressure increased [None]
  - Oral mucosal eruption [None]
  - Oral mucosal blistering [None]
  - Wound [None]
  - Wound abscess [None]
  - Necrosis [None]
  - Oral pain [None]
  - Dental caries [None]
  - Uterine cervical squamous metaplasia [None]
  - Pain [None]
  - Heart rate increased [None]
  - Adenomyosis [None]

NARRATIVE: CASE EVENT DATE: 201407
